FAERS Safety Report 24224584 (Version 1)
Quarter: 2024Q3

REPORT INFORMATION
  Report Type: Spontaneous
  Country: US (occurrence: None)
  Receive Date: 20240818
  Receipt Date: 20240818
  Transmission Date: 20241017
  Serious: Yes (Hospitalization, Other)
  Sender: Public
  Company Number: None

PATIENT
  Sex: Male

DRUGS (1)
  1. HERBALS\MUSHROOMS UNSPECIFIED [Suspect]
     Active Substance: HERBALS\MUSHROOMS UNSPECIFIED
     Indication: Substance use
     Dosage: DAILY ORAL
     Route: 048
     Dates: start: 20240601, end: 20240601

REACTIONS (3)
  - Seizure [None]
  - Heart rate decreased [None]
  - Coma [None]

NARRATIVE: CASE EVENT DATE: 20240601
